FAERS Safety Report 5238728-6 (Version None)
Quarter: 2007Q1

REPORT INFORMATION
  Report Type: 
  Country: None (occurrence: None)
  Receive Date: 20070215
  Receipt Date: 20070205
  Transmission Date: 20070707
  Serious: Yes (Other)
  Sender: FDA-Public Use
  Company Number: GR-PFIZER INC-2007010061

PATIENT
  Sex: Male

DRUGS (2)
  1. LIPITOR [Suspect]
     Indication: HYPERCHOLESTEROLAEMIA
     Route: 048
     Dates: start: 20070123, end: 20070202
  2. LANSOPRAZOLE [Concomitant]
     Route: 048

REACTIONS (2)
  - TONGUE BLISTERING [None]
  - TONGUE OEDEMA [None]
